FAERS Safety Report 4562825-1 (Version None)
Quarter: 2005Q1

REPORT INFORMATION
  Report Type: 
  Country: None (occurrence: None)
  Receive Date: 20050127
  Receipt Date: 20050121
  Transmission Date: 20050727
  Serious: Yes (Life-Threatening)
  Sender: FDA-Public Use
  Company Number: JP-GLAXOSMITHKLINE-B0365574A

PATIENT
  Sex: Female

DRUGS (1)
  1. ZOVIRAX [Suspect]
     Indication: ENCEPHALITIS
     Dosage: 1500MG PER DAY
     Route: 042
     Dates: start: 20041215, end: 20041224

REACTIONS (2)
  - JAUNDICE [None]
  - LIVER DISORDER [None]
